FAERS Safety Report 7387185-2 (Version None)
Quarter: 2011Q1

REPORT INFORMATION
  Report Type: 
  Country: None (occurrence: None)
  Receive Date: 20110331
  Receipt Date: 20110324
  Transmission Date: 20110831
  Serious: Yes (Hospitalization)
  Sender: FDA-Public Use
  Company Number: B0708136A

PATIENT
  Sex: Female

DRUGS (17)
  1. CLAMOXYL [Suspect]
     Indication: ERYSIPELAS
     Dosage: 1G THREE TIMES PER DAY
     Route: 065
     Dates: start: 20110303, end: 20110307
  2. CALCIUM + VIT D [Concomitant]
  3. SODIUM CARBOXYMETHYLCELLULOSE [Concomitant]
     Indication: ERYSIPELAS
     Route: 062
  4. COUMADIN [Concomitant]
     Route: 065
     Dates: start: 20090101
  5. TETANUS VACCINE (NON-GSK) [Suspect]
     Indication: PROPHYLAXIS
     Route: 065
     Dates: start: 20110303, end: 20110303
  6. ACETAMINOPHEN [Concomitant]
  7. BETNEVAL [Concomitant]
  8. FORLAX [Concomitant]
  9. TOPALGIC (FRANCE) [Concomitant]
  10. EMLA [Concomitant]
  11. HYDREA [Concomitant]
     Dosage: 500MG IN THE MORNING
     Route: 048
  12. EQUANIL [Concomitant]
     Dosage: 100MG TWICE PER DAY
     Route: 048
  13. LEVOTHYROX [Concomitant]
     Dosage: 100MCG PER DAY
     Route: 048
  14. MEPILEX [Concomitant]
     Indication: ERYSIPELAS
  15. STILNOX [Concomitant]
  16. ALDACTONE [Concomitant]
     Dosage: 25MG SEE DOSAGE TEXT
     Route: 048
  17. DAFLON [Concomitant]
     Dosage: 3UNIT PER DAY

REACTIONS (5)
  - RASH PUSTULAR [None]
  - PUSTULAR PSORIASIS [None]
  - CHOLESTASIS [None]
  - ACUTE GENERALISED EXANTHEMATOUS PUSTULOSIS [None]
  - HEPATOCELLULAR INJURY [None]
